FAERS Safety Report 8441986-8 (Version None)
Quarter: 2012Q2

REPORT INFORMATION
  Report Type: 
  Country: None (occurrence: None)
  Receive Date: 20120615
  Receipt Date: 20111028
  Transmission Date: 20120825
  Serious: No
  Sender: FDA-Public Use
  Company Number: US-NOVEN-11US003515

PATIENT
  Sex: Female

DRUGS (1)
  1. DAYTRANA [Suspect]
     Indication: POST CONCUSSION SYNDROME
     Dosage: 20 MG, QD
     Route: 062
     Dates: start: 20110101, end: 20111001

REACTIONS (5)
  - APPLICATION SITE ERYTHEMA [None]
  - OFF LABEL USE [None]
  - APPLICATION SITE IRRITATION [None]
  - DRUG ADMINISTERED AT INAPPROPRIATE SITE [None]
  - APPLICATION SITE PRURITUS [None]
